FAERS Safety Report 8431130-5 (Version None)
Quarter: 2012Q2

REPORT INFORMATION
  Report Type: 
  Country: None (occurrence: None)
  Receive Date: 20120612
  Receipt Date: 20120607
  Transmission Date: 20120825
  Serious: Yes (Disabling, Other)
  Sender: FDA-Public Use
  Company Number: US-MERCK-1107USA01265

PATIENT
  Age: 60 Year
  Sex: Female

DRUGS (3)
  1. FOSAMAX [Suspect]
     Indication: OSTEOPOROSIS
     Route: 048
     Dates: start: 19960101, end: 20090901
  2. ALENDRONATE SODIUM [Suspect]
     Route: 065
     Dates: start: 20080923
  3. FOSAMAX PLUS D [Suspect]
     Indication: OSTEOPOROSIS
     Route: 048
     Dates: start: 19960101, end: 20090901

REACTIONS (4)
  - FEMUR FRACTURE [None]
  - DEVICE FAILURE [None]
  - WRIST FRACTURE [None]
  - FALL [None]
